FAERS Safety Report 6633281-4 (Version None)
Quarter: 2010Q1

REPORT INFORMATION
  Report Type: 
  Country: None (occurrence: None)
  Receive Date: 20100312
  Receipt Date: 20100304
  Transmission Date: 20100710
  Serious: Yes (Other)
  Sender: FDA-Public Use
  Company Number: DE-PFIZER INC-2010027704

PATIENT
  Age: 72 Year
  Sex: Female

DRUGS (5)
  1. SORTIS [Suspect]
     Indication: BLOOD CHOLESTEROL INCREASED
     Dosage: UNK
     Route: 048
     Dates: start: 20080101
  2. SORTIS [Suspect]
     Indication: BLOOD TRIGLYCERIDES INCREASED
  3. APROVEL [Concomitant]
     Dosage: UNK
  4. ASPIRIN [Concomitant]
     Dosage: UNK
  5. BISOPROLOL [Concomitant]
     Dosage: UNK
     Dates: start: 20090101

REACTIONS (3)
  - BURNING SENSATION [None]
  - MUSCLE SPASMS [None]
  - PERIPHERAL COLDNESS [None]
